FAERS Safety Report 7942634-3 (Version None)
Quarter: 2011Q4

REPORT INFORMATION
  Report Type: 
  Country: None (occurrence: None)
  Receive Date: 20111128
  Receipt Date: 20111117
  Transmission Date: 20120403
  Serious: Yes (Life-Threatening)
  Sender: FDA-Public Use
  Company Number: NL-CELGENEUS-114-21880-11112455

PATIENT
  Sex: Male

DRUGS (4)
  1. CYTARABINE [Suspect]
  2. REVLIMID [Suspect]
     Indication: ACUTE MYELOID LEUKAEMIA
     Dosage: 15 MILLIGRAM
     Route: 048
     Dates: start: 20111026
  3. REVLIMID [Suspect]
  4. CYTARABINE [Suspect]
     Indication: ACUTE MYELOID LEUKAEMIA
     Dosage: 3660 MILLIGRAM/SQ. METER
     Route: 041
     Dates: start: 20111026

REACTIONS (2)
  - HAEMODYNAMIC INSTABILITY [None]
  - SYSTEMIC INFLAMMATORY RESPONSE SYNDROME [None]
